FAERS Safety Report 8141563-2 (Version None)
Quarter: 2012Q1

REPORT INFORMATION
  Report Type: 
  Country: None (occurrence: None)
  Receive Date: 20120103
  Receipt Date: 20111024
  Transmission Date: 20120608
  Serious: No
  Sender: FDA-Public Use
  Company Number: AE-2011-002624

PATIENT
  Age: 60 Year
  Sex: Male
  Weight: 83.9154 kg

DRUGS (9)
  1. INCIVEK [Suspect]
     Dosage: 2250 MG (750 MG,3 IN 1 D),ORAL
     Route: 048
     Dates: start: 20111022
  2. KLONOPIN [Concomitant]
  3. MULTIVITAMIN [Concomitant]
  4. MELATONIN (MELATONIN) [Concomitant]
  5. GLUCOSAMINE (GLUCOSAMINE) [Concomitant]
  6. OMEPRAZOLE [Concomitant]
  7. PEGINTERFERON (PEGINTERFERON ALFA-2A) [Concomitant]
  8. RIBAVIRIN [Concomitant]
  9. IBUPROFEN [Concomitant]

REACTIONS (5)
  - TOOTHACHE [None]
  - FATIGUE [None]
  - GINGIVAL BLEEDING [None]
  - RASH PRURITIC [None]
  - INSOMNIA [None]
